FAERS Safety Report 12472516 (Version 1)
Quarter: 2016Q2

REPORT INFORMATION
  Report Type: Spontaneous
  Country: US (occurrence: US)
  Receive Date: 20160616
  Receipt Date: 20160616
  Transmission Date: 20160815
  Serious: Yes (Disabling)
  Sender: FDA-Public Use
  Company Number: US-PERRIGO-16US016366

PATIENT
  Sex: Male
  Weight: 117.91 kg

DRUGS (1)
  1. PHENOL 1.4% CHERRY 328 [Suspect]
     Active Substance: PHENOL
     Indication: OROPHARYNGEAL PAIN
     Dosage: 5 SPRAYS,PRN
     Route: 048
     Dates: start: 201605

REACTIONS (2)
  - Drug screen positive [Unknown]
  - Expired product administered [Unknown]

NARRATIVE: CASE EVENT DATE: 2016
